FAERS Safety Report 6719257-7 (Version None)
Quarter: 2010Q2

REPORT INFORMATION
  Report Type: 
  Country: None (occurrence: None)
  Receive Date: 20100511
  Receipt Date: 20100429
  Transmission Date: 20101027
  Serious: Yes (Other)
  Sender: FDA-Public Use
  Company Number: IT-B.I. PHARMACEUTICALS,INC./RIDGEFIELD-2010-DE-02418GD

PATIENT
  Sex: Female

DRUGS (5)
  1. TIPRANAVIR [Suspect]
     Indication: HIV INFECTION
  2. STAVUDINE [Suspect]
     Indication: HIV INFECTION
  3. TENOFOVIR DISOPROXIL FUMARATE [Suspect]
     Indication: HIV INFECTION
  4. RITONAVIR [Suspect]
     Indication: HIV INFECTION
  5. ENFUVIRTIDE [Suspect]
     Indication: HIV INFECTION

REACTIONS (7)
  - CHORIOAMNIONITIS [None]
  - COAGULOPATHY [None]
  - HEPATIC FAILURE [None]
  - KLEBSIELLA INFECTION [None]
  - PREMATURE RUPTURE OF MEMBRANES [None]
  - UREAPLASMA INFECTION [None]
  - VAGINAL INFECTION [None]
